FAERS Safety Report 8181256-9 (Version None)
Quarter: 2012Q1

REPORT INFORMATION
  Report Type: 
  Country: None (occurrence: None)
  Receive Date: 20120302
  Receipt Date: 20120223
  Transmission Date: 20120608
  Serious: Yes (Hospitalization, Other)
  Sender: FDA-Public Use
  Company Number: US-BAYER-2011-067719

PATIENT
  Sex: Female
  Weight: 81.633 kg

DRUGS (7)
  1. DROSPIRENONE AND ETHINYL ESTRADIOL [Suspect]
     Indication: MENSTRUAL CYCLE MANAGEMENT
     Dosage: UNK
     Dates: start: 20090410
  2. BENTYL [Concomitant]
     Dosage: 10 MG, TID
     Route: 048
     Dates: start: 20090714
  3. YASMIN [Suspect]
     Indication: MENSTRUAL CYCLE MANAGEMENT
     Dosage: UNK
     Dates: start: 20040121, end: 20080128
  4. PREVACID [Concomitant]
     Dosage: UNK
     Route: 048
  5. PRILOSEC [Concomitant]
     Dosage: DAILY DOSE 20 MG
     Route: 048
     Dates: start: 20090714
  6. DESOGESTREL AND ETHINYL ESTRADIOL [Concomitant]
     Dosage: UNK
     Route: 048
     Dates: start: 20090709
  7. CRESTOR [Concomitant]
     Dosage: DAILY DOSE 20 MG
     Route: 048

REACTIONS (8)
  - ABDOMINAL PAIN [None]
  - ABDOMINAL PAIN UPPER [None]
  - HEPATOBILIARY SCAN ABNORMAL [None]
  - CHOLECYSTITIS [None]
  - GALLBLADDER DISORDER [None]
  - MENTAL DISORDER [None]
  - PANCREATITIS [None]
  - PAIN [None]
